FAERS Safety Report 7555553-1 (Version None)
Quarter: 2011Q2

REPORT INFORMATION
  Report Type: 
  Country: None (occurrence: None)
  Receive Date: 20110617
  Receipt Date: 20040528
  Transmission Date: 20111010
  Serious: Yes (Hospitalization)
  Sender: FDA-Public Use
  Company Number: PHHO2004JP07832

PATIENT
  Sex: Female

DRUGS (12)
  1. GLAKAY [Concomitant]
     Dosage: UNK
  2. ABOVIS [Concomitant]
     Dosage: UNK
  3. CEREKINON [Concomitant]
     Dosage: UNK
  4. VITAMEDIN [Concomitant]
     Dosage: UNK
  5. LOCHOLEST [Suspect]
     Indication: HYPERCHOLESTEROLAEMIA
     Dosage: 20 MG, QD
     Route: 048
     Dates: start: 20001003
  6. ALFAROL [Concomitant]
     Dosage: UNK
  7. GASCON [Concomitant]
     Dosage: UNK
  8. MECOBALAMIN [Concomitant]
     Dosage: UNK
  9. RIZE [Concomitant]
     Dosage: UNK
  10. MARZULENE [Concomitant]
     Dosage: UNK
  11. PLATIBIT [Concomitant]
     Dosage: UNK
  12. HALCION [Concomitant]
     Indication: INSOMNIA
     Dosage: UNK

REACTIONS (3)
  - COUGH [None]
  - PYREXIA [None]
  - INTERSTITIAL LUNG DISEASE [None]
